FAERS Safety Report 5642704-9 (Version None)
Quarter: 2008Q1

REPORT INFORMATION
  Report Type: 
  Country: None (occurrence: None)
  Receive Date: 20080228
  Receipt Date: 20080222
  Transmission Date: 20080703
  Serious: Yes (Hospitalization)
  Sender: FDA-Public Use
  Company Number: IT-BAYER-200813763GPV

PATIENT
  Age: 37 Year
  Sex: Female

DRUGS (1)
  1. ASPIRIN [Suspect]
     Indication: INFLUENZA
     Dosage: TOTAL DAILY DOSE: 1500 MG  UNIT DOSE: 500 MG
     Route: 048
     Dates: start: 20080207, end: 20080209

REACTIONS (1)
  - GASTRITIS HAEMORRHAGIC [None]
